FAERS Safety Report 23070101 (Version 2)
Quarter: 2023Q4

REPORT INFORMATION
  Report Type: Report from Study
  Country: US (occurrence: US)
  Receive Date: 20231016
  Receipt Date: 20231117
  Transmission Date: 20240110
  Serious: Yes (Death, Hospitalization)
  Sender: FDA-Public Use
  Company Number: US-ARGENX-2023-ARGX-US001139

PATIENT

DRUGS (2)
  1. VYVGART [Suspect]
     Active Substance: EFGARTIGIMOD ALFA-FCAB
     Indication: Myasthenia gravis
     Dosage: UNK
     Route: 042
     Dates: start: 20230320
  2. VYVGART [Suspect]
     Active Substance: EFGARTIGIMOD ALFA-FCAB
     Dosage: UNK
     Dates: start: 20230815

REACTIONS (10)
  - Myasthenia gravis [Fatal]
  - Pneumonia [Fatal]
  - Hypotension [Unknown]
  - Ankle fracture [Unknown]
  - Dizziness [Unknown]
  - Fall [Unknown]
  - Blood pressure decreased [Unknown]
  - Head injury [Unknown]
  - Fall [Unknown]
  - Asthenia [Unknown]
